FAERS Safety Report 23521136 (Version 1)
Quarter: 2024Q1

REPORT INFORMATION
  Report Type: 
  Country: None (occurrence: None)
  Receive Date: 20240214
  Receipt Date: 20240214
  Transmission Date: 20240410
  Serious: No
  Sender: FDA-Public Use
  Company Number: FR-ROCHE-3508048

PATIENT

DRUGS (12)
  1. RITUXIMAB [Suspect]
     Active Substance: RITUXIMAB
  2. MYCOPHENOLATE MOFETIL [Suspect]
     Active Substance: MYCOPHENOLATE MOFETIL
  3. OMALIZUMAB [Suspect]
     Active Substance: OMALIZUMAB
  4. OMALIZUMAB [Suspect]
     Active Substance: OMALIZUMAB
  5. OMALIZUMAB [Suspect]
     Active Substance: OMALIZUMAB
  6. CLOBETASOL PROPIONATE [Suspect]
     Active Substance: CLOBETASOL PROPIONATE
  7. METHOTREXATE [Suspect]
     Active Substance: METHOTREXATE
  8. DOXYCYCLINE [Suspect]
     Active Substance: DOXYCYCLINE
  9. AZATHIOPRINE [Suspect]
     Active Substance: AZATHIOPRINE
  10. SULFASALAZINE [Suspect]
     Active Substance: SULFASALAZINE
  11. DAPSONE [Suspect]
     Active Substance: DAPSONE
  12. CYCLOSPORINE [Suspect]
     Active Substance: CYCLOSPORINE

REACTIONS (8)
  - Pneumonia bacterial [None]
  - COVID-19 [None]
  - Necrotising fasciitis [None]
  - IIIrd nerve paralysis [None]
  - Off label use [None]
  - Drug intolerance [None]
  - Influenza like illness [None]
  - Malaise [None]
